FAERS Safety Report 16017332 (Version 3)
Quarter: 2019Q2

REPORT INFORMATION
  Report Type: Spontaneous
  Country: TR (occurrence: TR)
  Receive Date: 20190228
  Receipt Date: 20190506
  Transmission Date: 20190711
  Serious: Yes (Other)
  Sender: FDA-Public Use
  Company Number: TR-PFIZER INC-2019086246

PATIENT
  Age: 2 Year
  Sex: Female
  Weight: 10 kg

DRUGS (4)
  1. ELELYSO [Suspect]
     Active Substance: TALIGLUCERASE ALFA
     Dosage: 600 IU, UNK
     Dates: start: 20190308
  2. ELELYSO [Suspect]
     Active Substance: TALIGLUCERASE ALFA
     Indication: GAUCHER^S DISEASE
     Dosage: 600 IU, (EVERY 15 DAYS)
  3. ELELYSO [Suspect]
     Active Substance: TALIGLUCERASE ALFA
     Dosage: 600 IU, UNK
     Dates: start: 20190212
  4. ELELYSO [Suspect]
     Active Substance: TALIGLUCERASE ALFA
     Dosage: 600 IU, UNK
     Dates: start: 20190222

REACTIONS (5)
  - Cyanosis [Recovered/Resolved]
  - Pneumonia [Unknown]
  - Product use issue [Unknown]
  - Respiratory distress [Recovered/Resolved]
  - Lower respiratory tract infection [Unknown]

NARRATIVE: CASE EVENT DATE: 20190212
